FAERS Safety Report 5166487-4 (Version None)
Quarter: 2006Q4

REPORT INFORMATION
  Report Type: 
  Country: None (occurrence: None)
  Receive Date: 20061207
  Receipt Date: 20041201
  Transmission Date: 20070319
  Serious: Yes (Hospitalization, Disabling)
  Sender: FDA-Public Use
  Company Number: PHHO2004JP17161

PATIENT
  Age: 73 Year
  Sex: Female
  Weight: 45 kg

DRUGS (11)
  1. PARIET [Concomitant]
     Indication: REFLUX OESOPHAGITIS
  2. BIOFERMIN [Concomitant]
     Indication: ENTEROCOLITIS
  3. FERROMIA [Concomitant]
     Indication: ANAEMIA
  4. ATELEC [Concomitant]
     Indication: HYPERTENSION
     Dates: end: 20050930
  5. TANATRIL [Concomitant]
     Indication: HYPERTENSION
     Dosage: UNK, UNK
     Dates: start: 20050930
  6. ASPIRIN [Concomitant]
     Indication: CEREBRAL THROMBOSIS
     Dosage: UNK, UNK
     Dates: start: 20060428
  7. MAGLAX [Concomitant]
     Indication: CONSTIPATION
     Dosage: UNK, UNK
     Dates: start: 20060113
  8. DIOVAN [Suspect]
     Indication: HYPERTENSION
     Dosage: UNK, UNK
     Route: 048
     Dates: start: 20030826, end: 20051215
  9. DIOVAN [Suspect]
     Dates: start: 20051216
  10. CALBLOCK [Suspect]
     Indication: HYPERTENSION
     Dosage: UNK, UNK
     Route: 048
     Dates: start: 20030917
  11. TENORMIN [Concomitant]
     Indication: HYPERTENSION
     Dosage: UNK, UNK
     Dates: start: 20040224

REACTIONS (8)
  - BACK INJURY [None]
  - BACK PAIN [None]
  - CRANIAL NERVE PARALYSIS [None]
  - DYSARTHRIA [None]
  - FALL [None]
  - HEMIPLEGIA [None]
  - LUMBAR VERTEBRAL FRACTURE [None]
  - THROMBOTIC STROKE [None]
